FAERS Safety Report 9594341 (Version 1)
Quarter: 2013Q4

REPORT INFORMATION
  Report Type: Spontaneous
  Country: US (occurrence: US)
  Receive Date: 20131004
  Receipt Date: 20131004
  Transmission Date: 20140711
  Serious: Yes (Other)
  Sender: FDA-Public Use
  Company Number: US-NAPPMUNDI-USA-2012-0092076

PATIENT
  Age: 30 Year
  Sex: Female

DRUGS (2)
  1. BUTRANS [Suspect]
     Indication: PAIN
     Dosage: 10 MCG/HR, UNK
  2. BUTRANS [Suspect]
     Dosage: 20 MCG/HR, UNK

REACTIONS (3)
  - Seizure like phenomena [Unknown]
  - Tremor [Unknown]
  - Inadequate analgesia [Unknown]
